FAERS Safety Report 23504800 (Version 1)
Quarter: 2024Q1

REPORT INFORMATION
  Report Type: Spontaneous
  Country: GB (occurrence: GB)
  Receive Date: 20240209
  Receipt Date: 20240209
  Transmission Date: 20240409
  Serious: No
  Sender: FDA-Public Use
  Company Number: None

PATIENT
  Age: 54 Year
  Sex: Male
  Weight: 131 kg

DRUGS (16)
  1. CEPHALEXIN [Suspect]
     Active Substance: CEPHALEXIN
     Indication: Product used for unknown indication
     Dosage: 500 MILLIGRAM, QD (PER DAY) (CAPSULE)
     Route: 065
     Dates: start: 20230329
  2. AMITRIPTYLINE HYDROCHLORIDE [Concomitant]
     Active Substance: AMITRIPTYLINE HYDROCHLORIDE
     Indication: Ill-defined disorder
     Dosage: 1 DOSAGE FORM, HS (TAKE ONE TABLET AT NIGHT)
     Route: 065
     Dates: start: 20230425, end: 20230425
  3. Bunov [Concomitant]
     Indication: Ill-defined disorder
     Dosage: 1 DOSAGE FORM, ONCE WEEKLY (APPLY ONE PATCH WEEKLY)
     Route: 065
     Dates: start: 20230425, end: 20230523
  4. DESLORATADINE [Concomitant]
     Active Substance: DESLORATADINE
     Indication: Ill-defined disorder
     Dosage: UNK, QD (TAKE ONE DAILY)
     Route: 065
     Dates: start: 20230207
  5. DOXAZOSIN [Concomitant]
     Active Substance: DOXAZOSIN MESYLATE
     Indication: Ill-defined disorder
     Dosage: 1 DOSAGE FORM, OD (TAKE ONE TABLET ONCE A DAY)
     Route: 065
     Dates: start: 20230207
  6. FLUTICASONE PROPIONATE\FORMOTEROL FUMARATE [Concomitant]
     Active Substance: FLUTICASONE PROPIONATE\FORMOTEROL FUMARATE
     Indication: Ill-defined disorder
     Dosage: UNK, BID (TWO PUFFS TWICE DAILY)
     Route: 065
     Dates: start: 20230207, end: 20230506
  7. FOLIC ACID [Concomitant]
     Active Substance: FOLIC ACID
     Indication: Ill-defined disorder
     Dosage: 1 DOSAGE FORM, OD (TAKE ONE TABLET ONCE A DAY)
     Route: 065
     Dates: start: 20230330
  8. FOSFOMYCIN [Concomitant]
     Active Substance: FOSFOMYCIN
     Indication: Ill-defined disorder
     Dosage: UNK (TAKE ONE, 3G SACHET, AS A SINGLE DOSE DISSOLVED)
     Route: 065
     Dates: start: 20230411, end: 20230412
  9. INSTILLAGEL [Concomitant]
     Active Substance: CHLORHEXIDINE GLUCONATE\LIDOCAINE HYDROCHLORIDE
     Indication: Ill-defined disorder
     Dosage: UNK (USE AS DIRECTED)
     Route: 065
     Dates: start: 20230207
  10. Invita-D3 [Concomitant]
     Indication: Ill-defined disorder
     Dosage: UNK (TAKE ONE TWICE A WEEK FOR 6 WEEKS FOLLOWED)
     Route: 065
     Dates: start: 20230330, end: 20230511
  11. LAMOTRIGINE [Concomitant]
     Active Substance: LAMOTRIGINE
     Indication: Ill-defined disorder
     Dosage: 1 DOSAGE FORM, BID (ONE TABLET TWICE A DAY)
     Route: 065
     Dates: start: 20230207
  12. LOPERAMIDE [Concomitant]
     Active Substance: LOPERAMIDE
     Indication: Ill-defined disorder
     Dosage: UNK, BID (TAKE ONE TWICE A DAY)
     Route: 065
     Dates: start: 20230207
  13. PREDNISOLONE [Concomitant]
     Active Substance: PREDNISOLONE
     Indication: Ill-defined disorder
     Dosage: 6 DOSAGE FORM, QD (TAKE SIX TABLETS IN THE MORNING AFTER FOOD)
     Route: 065
     Dates: start: 20230601, end: 20230604
  14. FLUTICASONE FUROATE\VILANTEROL TRIFENATATE [Concomitant]
     Active Substance: FLUTICASONE FUROATE\VILANTEROL TRIFENATATE
     Indication: Ill-defined disorder
     Dosage: UNK, OD (INHALE ONE DOSE ONCE DAILY (PLEASE RETURN YOUR))
     Route: 065
     Dates: start: 20230506
  15. ALBUTEROL [Concomitant]
     Active Substance: ALBUTEROL
     Indication: Ill-defined disorder
     Dosage: UNK, PRN (INHALE 2 DOSES AS NEEDED (PLEASE RETURN YOUR EM))
     Route: 065
     Dates: start: 20230207
  16. TRIMETHOPRIM [Concomitant]
     Active Substance: TRIMETHOPRIM
     Indication: Ill-defined disorder
     Dosage: 1 DOSAGE FORM, BID (TAKE ONE TABLET TWICE A DAY)
     Route: 065
     Dates: start: 20230327, end: 20230410

REACTIONS (2)
  - Nausea [Recovered/Resolved]
  - Vomiting [Unknown]

NARRATIVE: CASE EVENT DATE: 20230411
